FAERS Safety Report 17656696 (Version 1)
Quarter: 2020Q2

REPORT INFORMATION
  Report Type: Spontaneous
  Country: CA (occurrence: CA)
  Receive Date: 20200410
  Receipt Date: 20200410
  Transmission Date: 20200713
  Serious: Yes (Hospitalization)
  Sender: FDA-Public Use
  Company Number: NVSC2020CA096831

PATIENT
  Age: 77 Year
  Sex: Male

DRUGS (4)
  1. STELARA [Concomitant]
     Active Substance: USTEKINUMAB
     Indication: PRODUCT USED FOR UNKNOWN INDICATION
     Route: 058
  2. PREDNISONE. [Concomitant]
     Active Substance: PREDNISONE
     Indication: PRODUCT USED FOR UNKNOWN INDICATION
     Route: 065
  3. METHOTREXATE. [Suspect]
     Active Substance: METHOTREXATE
     Indication: PRODUCT USED FOR UNKNOWN INDICATION
     Dosage: 20 MG
     Route: 065
  4. COSENTYX [Suspect]
     Active Substance: SECUKINUMAB
     Indication: PSORIASIS
     Dosage: 300 MG, QW
     Route: 058

REACTIONS (22)
  - Diarrhoea [Recovered/Resolved]
  - Skin burning sensation [Recovered/Resolved]
  - Dysphagia [Recovered/Resolved]
  - Erythema [Recovered/Resolved]
  - Muscle spasms [Recovered/Resolved]
  - Prescribed overdose [Recovered/Resolved]
  - Pruritus [Recovered/Resolved]
  - Insomnia [Recovered/Resolved]
  - Nasopharyngitis [Recovered/Resolved]
  - Psoriasis [Recovered/Resolved]
  - Drug ineffective [Recovered/Resolved]
  - Oropharyngeal pain [Recovered/Resolved]
  - Cough [Recovered/Resolved]
  - Pain in extremity [Recovered/Resolved]
  - Rash erythematous [Recovered/Resolved]
  - Crying [Recovered/Resolved]
  - Pain [Recovered/Resolved]
  - Pain of skin [Recovered/Resolved]
  - Rhinorrhoea [Recovered/Resolved]
  - Therapeutic product effect incomplete [Recovered/Resolved]
  - Weight increased [Recovered/Resolved]
  - Swelling face [Recovered/Resolved]
